FAERS Safety Report 13147566 (Version 2)
Quarter: 2017Q1

REPORT INFORMATION
  Report Type: Report from Study
  Country: US (occurrence: US)
  Receive Date: 20170125
  Receipt Date: 20170127
  Transmission Date: 20170428
  Serious: No
  Sender: FDA-Public Use
  Company Number: PHEH2017US002274

PATIENT
  Sex: Male

DRUGS (1)
  1. TASIGNA [Suspect]
     Active Substance: NILOTINIB
     Indication: PRODUCT USED FOR UNKNOWN INDICATION
     Dosage: 150 MG, QID (4 TIMES A DAY)
     Route: 048
     Dates: start: 20160822

REACTIONS (7)
  - Infection [Unknown]
  - Pain [Unknown]
  - Infection reactivation [Unknown]
  - Full blood count decreased [Unknown]
  - Fatigue [Unknown]
  - Amnesia [Unknown]
  - Dizziness [Unknown]
